FAERS Safety Report 13307435 (Version 1)
Quarter: 2017Q1

REPORT INFORMATION
  Report Type: Spontaneous
  Country: US (occurrence: US)
  Receive Date: 20170308
  Receipt Date: 20170308
  Transmission Date: 20170428
  Serious: No
  Sender: FDA-Public Use
  Company Number: US-PERRIGO-16US023150

PATIENT
  Age: 84 Year
  Sex: Female
  Weight: 81.63 kg

DRUGS (2)
  1. CARDIZEM [Concomitant]
     Active Substance: DILTIAZEM HYDROCHLORIDE
     Indication: HYPERTENSION
     Dosage: UNK
     Route: 065
  2. NAPROXEN SODIUM. [Suspect]
     Active Substance: NAPROXEN SODIUM
     Indication: ASTHENIA
     Dosage: 220 MG, QD
     Route: 048
     Dates: start: 201608, end: 20161220

REACTIONS (4)
  - Incorrect drug administration duration [Recovered/Resolved]
  - Dysgeusia [Recovered/Resolved]
  - Off label use [Recovered/Resolved]
  - Therapeutic response unexpected [Recovered/Resolved]

NARRATIVE: CASE EVENT DATE: 201608
